FAERS Safety Report 6306849-2 (Version None)
Quarter: 2009Q3

REPORT INFORMATION
  Report Type: 
  Country: None (occurrence: None)
  Receive Date: 20090812
  Receipt Date: 20090520
  Transmission Date: 20100115
  Serious: Yes (Other)
  Sender: FDA-Public Use
  Company Number: JP-PFIZER INC-2009235879

PATIENT
  Age: 57 Year

DRUGS (11)
  1. MIGLITOL [Suspect]
     Indication: DIABETES MELLITUS
     Dosage: 50 MG, 3X/DAY
     Route: 048
     Dates: start: 20090424, end: 20090430
  2. AMARYL [Concomitant]
     Route: 048
  3. LIPITOR [Concomitant]
     Route: 048
  4. MELBIN [Concomitant]
     Route: 048
  5. NU-LOTAN [Concomitant]
     Route: 048
  6. OMEPRAL [Concomitant]
     Route: 048
  7. VASOLAN [Concomitant]
     Route: 048
  8. ASPIRIN [Concomitant]
     Route: 048
  9. ZESULAN [Concomitant]
     Route: 048
  10. ATARAX [Concomitant]
  11. ALLELOCK [Concomitant]
     Route: 048

REACTIONS (4)
  - ALANINE AMINOTRANSFERASE INCREASED [None]
  - ASPARTATE AMINOTRANSFERASE INCREASED [None]
  - BLOOD BILIRUBIN INCREASED [None]
  - HEPATIC ENZYME INCREASED [None]
